FAERS Safety Report 5058479-0 (Version None)
Quarter: 2006Q3

REPORT INFORMATION
  Report Type: 
  Country: None (occurrence: None)
  Receive Date: 20060719
  Receipt Date: 20060710
  Transmission Date: 20061208
  Serious: Yes (Death)
  Sender: FDA-Public Use
  Company Number: 200610498BFR

PATIENT
  Age: 78 Year
  Sex: Male
  Weight: 83 kg

DRUGS (4)
  1. NEXAVAR [Suspect]
     Indication: METASTATIC RENAL CELL CARCINOMA
     Dosage: 200 MG, BID, ORAL
     Route: 048
     Dates: start: 20060519, end: 20060524
  2. MOVICOL [Concomitant]
  3. DEBRIDAT [Concomitant]
  4. NEXIUM [Concomitant]

REACTIONS (9)
  - ANAEMIA [None]
  - CEREBRAL HAEMORRHAGE [None]
  - COMA [None]
  - DIARRHOEA [None]
  - HYPERTENSION [None]
  - MALAISE [None]
  - MELAENA [None]
  - METASTASES TO CENTRAL NERVOUS SYSTEM [None]
  - PYREXIA [None]
